FAERS Safety Report 9705558 (Version 2)
Quarter: 2013Q4

REPORT INFORMATION
  Report Type: Spontaneous
  Country: US (occurrence: US)
  Receive Date: 20131122
  Receipt Date: 20131122
  Transmission Date: 20140711
  Serious: No
  Sender: FDA-Public Use
  Company Number: US-GILEAD-2008-0016940

PATIENT
  Sex: Male
  Weight: 70.31 kg

DRUGS (20)
  1. LETAIRIS [Suspect]
     Indication: PULMONARY ARTERIAL HYPERTENSION
     Route: 048
     Dates: start: 20080602, end: 20080606
  2. CENTRUM [Concomitant]
     Route: 048
  3. SAW PALMETTO [Concomitant]
     Route: 048
  4. ALBUTEROL [Concomitant]
     Route: 055
  5. WELLBUTRIN XL [Concomitant]
     Route: 048
  6. IBUPROFEN [Concomitant]
     Route: 048
  7. VENTAVIS [Concomitant]
     Route: 055
  8. REVATIO [Concomitant]
     Route: 048
  9. FUROSEMIDE [Concomitant]
     Route: 048
  10. K-DUR [Concomitant]
     Route: 048
  11. METOLAZONE [Concomitant]
     Route: 048
  12. ADVAIR [Concomitant]
     Route: 055
  13. DIAMOX SEQUELS [Concomitant]
     Route: 048
  14. BETA CAROTENE [Concomitant]
     Route: 048
  15. VITAMIN C [Concomitant]
  16. FISH OIL [Concomitant]
     Route: 048
  17. FISH OIL [Concomitant]
     Route: 048
  18. VITAMIN B COMPLEX [Concomitant]
     Route: 048
  19. VITAMIN A+D [Concomitant]
     Route: 048
  20. PREDNISONE [Concomitant]
     Route: 048

REACTIONS (3)
  - Lethargy [Unknown]
  - Swelling [Recovered/Resolved]
  - Flushing [Recovered/Resolved]
